FAERS Safety Report 21107590 (Version 1)
Quarter: 2022Q3

REPORT INFORMATION
  Report Type: Spontaneous
  Country: DE (occurrence: DE)
  Receive Date: 20220720
  Receipt Date: 20220720
  Transmission Date: 20221027
  Serious: Yes (Hospitalization)
  Sender: FDA-Public Use
  Company Number: DE-EMBRYOTOX-202115838

PATIENT
  Age: 0 Year
  Sex: Male
  Weight: 4.04 kg

DRUGS (8)
  1. FYCOMPA [Suspect]
     Active Substance: PERAMPANEL
     Indication: Foetal exposure during pregnancy
     Route: 064
     Dates: start: 20200104, end: 2020
  2. FYCOMPA [Suspect]
     Active Substance: PERAMPANEL
     Route: 064
     Dates: start: 2020, end: 20201008
  3. CARBAMAZEPINE [Suspect]
     Active Substance: CARBAMAZEPINE
     Indication: Foetal exposure during pregnancy
     Route: 064
     Dates: start: 20200104, end: 2020
  4. CARBAMAZEPINE [Suspect]
     Active Substance: CARBAMAZEPINE
     Route: 064
     Dates: start: 2020, end: 2020
  5. CARBAMAZEPINE [Suspect]
     Active Substance: CARBAMAZEPINE
     Route: 064
     Dates: start: 2020, end: 2020
  6. CARBAMAZEPINE [Suspect]
     Active Substance: CARBAMAZEPINE
     Route: 064
     Dates: start: 2020, end: 20201008
  7. PREGABALIN [Concomitant]
     Active Substance: PREGABALIN
     Indication: Foetal exposure during pregnancy
     Route: 064
     Dates: end: 2020
  8. FOLIC ACID [Concomitant]
     Active Substance: FOLIC ACID
     Indication: Foetal exposure during pregnancy
     Dosage: DOSE AND FREQUENCY UNKNOWN
     Route: 064
     Dates: end: 2020

REACTIONS (7)
  - Neonatal tachypnoea [Recovered/Resolved]
  - Bradycardia neonatal [Recovered/Resolved]
  - Selective eating disorder [Recovered/Resolved]
  - Opisthotonus [Recovered/Resolved]
  - Oxygen saturation decreased [Recovered/Resolved]
  - Agitation neonatal [Recovered/Resolved]
  - Foetal exposure during pregnancy [Recovered/Resolved]

NARRATIVE: CASE EVENT DATE: 20201001
